FAERS Safety Report 8117290-4 (Version None)
Quarter: 2012Q1

REPORT INFORMATION
  Report Type: 
  Country: None (occurrence: None)
  Receive Date: 20120206
  Receipt Date: 20120125
  Transmission Date: 20120608
  Serious: Yes (Hospitalization, Other)
  Sender: FDA-Public Use
  Company Number: JP-ASTRAZENECA-2011SE75014

PATIENT
  Age: 17454 Day
  Sex: Female
  Weight: 82.3 kg

DRUGS (14)
  1. PROTEASE INHIBITORS [Concomitant]
  2. RABEPRAZOLE SODIUM [Concomitant]
     Route: 048
  3. SELBEX [Concomitant]
     Route: 048
  4. DEPAKENE [Concomitant]
     Indication: BORDERLINE PERSONALITY DISORDER
     Route: 048
     Dates: end: 20111206
  5. HALCION [Concomitant]
     Route: 048
  6. CLEAMINE [Concomitant]
     Indication: HEADACHE
     Route: 048
     Dates: end: 20111205
  7. PHENOBARBITAL TAB [Concomitant]
     Indication: BORDERLINE PERSONALITY DISORDER
     Route: 048
  8. LEXOTAN [Concomitant]
     Indication: BORDERLINE PERSONALITY DISORDER
     Route: 048
  9. CALAMINE [Concomitant]
  10. NITRAZEPAM [Concomitant]
     Route: 048
  11. SEISHOKU [Concomitant]
     Route: 042
     Dates: start: 20111205
  12. SEROQUEL [Suspect]
     Indication: BORDERLINE PERSONALITY DISORDER
     Route: 048
     Dates: end: 20111206
  13. DIAZEPAM [Concomitant]
     Indication: BORDERLINE PERSONALITY DISORDER
     Route: 048
  14. INSULIN [Concomitant]
     Route: 042
     Dates: start: 20111205, end: 20111216

REACTIONS (6)
  - WEIGHT INCREASED [None]
  - OFF LABEL USE [None]
  - DIABETIC KETOACIDOSIS [None]
  - HEPATIC STEATOSIS [None]
  - HYPERLIPIDAEMIA [None]
  - PANCREATITIS ACUTE [None]
